FAERS Safety Report 25361603 (Version 2)
Quarter: 2025Q2

REPORT INFORMATION
  Report Type: Spontaneous
  Country: US (occurrence: US)
  Receive Date: 20250527
  Receipt Date: 20250618
  Transmission Date: 20250717
  Serious: No
  Sender: HETERO
  Company Number: US-HETERO-HET2025US02560

PATIENT
  Sex: Female

DRUGS (1)
  1. ROSUVASTATIN [Suspect]
     Active Substance: ROSUVASTATIN
     Indication: Product used for unknown indication
     Route: 048

REACTIONS (3)
  - Rash [Recovering/Resolving]
  - Pruritus [Recovering/Resolving]
  - Product packaging issue [Unknown]
